FAERS Safety Report 15836188 (Version 6)
Quarter: 2019Q4

REPORT INFORMATION
  Report Type: Report from Study
  Country: US (occurrence: US)
  Receive Date: 20190117
  Receipt Date: 20191230
  Transmission Date: 20200122
  Serious: Yes (Death, Life-Threatening, Hospitalization, Other)
  Sender: FDA-Public Use
  Company Number: US-BRISTOL-MYERS SQUIBB COMPANY-BMS-2019-002091

PATIENT
  Age: 59 Year
  Sex: Male

DRUGS (4)
  1. IMATINIB MESILATE [Suspect]
     Active Substance: IMATINIB MESYLATE
     Indication: PRODUCT USED FOR UNKNOWN INDICATION
     Dosage: UNK
     Route: 065
  2. DASATINIB. [Suspect]
     Active Substance: DASATINIB
     Indication: PRODUCT USED FOR UNKNOWN INDICATION
     Dosage: UNK
     Route: 065
  3. COUMADIN [Suspect]
     Active Substance: WARFARIN SODIUM
     Indication: DEEP VEIN THROMBOSIS
     Dosage: UNK
     Route: 065
  4. NILOTINIB [Suspect]
     Active Substance: NILOTINIB
     Indication: PRODUCT USED FOR UNKNOWN INDICATION
     Dosage: UNK
     Route: 065

REACTIONS (10)
  - Respiratory distress [Fatal]
  - Nausea [Unknown]
  - Pyrexia [Unknown]
  - Gastrointestinal haemorrhage [Recovered/Resolved]
  - Syncope [Unknown]
  - Decreased appetite [Unknown]
  - Weight decreased [Unknown]
  - Haematuria [Unknown]
  - Malaise [Unknown]
  - Night sweats [Unknown]

NARRATIVE: CASE EVENT DATE: 20181107
